FAERS Safety Report 5008209-3 (Version None)
Quarter: 2006Q2

REPORT INFORMATION
  Report Type: 
  Country: None (occurrence: None)
  Receive Date: 20060404
  Receipt Date: 20060124
  Transmission Date: 20061013
  Serious: No
  Sender: FDA-Public Use
  Company Number: US200601004819

PATIENT
  Age: 70 Year
  Sex: Female

DRUGS (2)
  1. CYMBALTA [Suspect]
     Indication: DEPRESSION
     Dosage: 60 MG, CAPSULE, ORAL
     Route: 048
  2. LEXAPRO/USA/(ESCITALOPRAM) [Concomitant]

REACTIONS (2)
  - CRYING [None]
  - GLOBAL AMNESIA [None]
